FAERS Safety Report 7471930-1 (Version None)
Quarter: 2011Q2

REPORT INFORMATION
  Report Type: 
  Country: None (occurrence: None)
  Receive Date: 20110511
  Receipt Date: 20100729
  Transmission Date: 20111010
  Serious: No
  Sender: FDA-Public Use
  Company Number: A0872956A

PATIENT
  Age: 52 Year
  Sex: Female

DRUGS (7)
  1. ROBAXIN [Concomitant]
  2. OXYCODONE [Concomitant]
  3. TYKERB [Suspect]
     Indication: BREAST CANCER
     Dosage: 1215MG PER DAY
     Route: 048
     Dates: start: 20100726
  4. PHENERGAN HCL [Concomitant]
  5. LISINOPRIL [Concomitant]
  6. COREG [Concomitant]
  7. ZANTAC 75 [Concomitant]

REACTIONS (7)
  - WRONG TECHNIQUE IN DRUG USAGE PROCESS [None]
  - BACK DISORDER [None]
  - PAIN [None]
  - NAUSEA [None]
  - FATIGUE [None]
  - DISCOMFORT [None]
  - VOMITING [None]
